FAERS Safety Report 20075449 (Version 1)
Quarter: 2021Q4

REPORT INFORMATION
  Report Type: Spontaneous
  Country: US (occurrence: None)
  Receive Date: 20211116
  Receipt Date: 20211116
  Transmission Date: 20220303
  Serious: Yes (Other)
  Sender: FDA-Public Use
  Company Number: None

PATIENT
  Age: 82 Year
  Sex: Male
  Weight: 92.25 kg

DRUGS (6)
  1. ERLEADA [Suspect]
     Active Substance: APALUTAMIDE
     Indication: Prostate cancer
     Dosage: FREQUENCY : DAILY;?
     Route: 048
     Dates: start: 20210920, end: 20211105
  2. LISINOPRIL [Concomitant]
     Active Substance: LISINOPRIL
  3. Casodex 50MG [Concomitant]
  4. Tamsulosing 0.4MG [Concomitant]
  5. TEMAZEPAM [Concomitant]
     Active Substance: TEMAZEPAM
  6. Fish Oil 1000MG [Concomitant]

REACTIONS (2)
  - Seizure [None]
  - Adverse drug reaction [None]

NARRATIVE: CASE EVENT DATE: 20211105
